FAERS Safety Report 24367691 (Version 1)
Quarter: 2024Q3

REPORT INFORMATION
  Report Type: Spontaneous
  Country: US (occurrence: US)
  Receive Date: 20240926
  Receipt Date: 20240926
  Transmission Date: 20241016
  Serious: No
  Sender: PFIZER
  Company Number: US-PFIZER INC-202400264262

PATIENT
  Age: 44 Year
  Sex: Female
  Weight: 77.11 kg

DRUGS (6)
  1. NURTEC ODT [Suspect]
     Active Substance: RIMEGEPANT SULFATE
     Indication: Migraine
     Dosage: UNK
     Dates: start: 20230113
  2. NP THYROID [Concomitant]
     Active Substance: LEVOTHYROXINE\LIOTHYRONINE
     Indication: Autoimmune thyroiditis
     Dosage: 15 MG
  3. PROGESTERONE [Concomitant]
     Active Substance: PROGESTERONE
     Indication: Menstrual disorder
     Dosage: 300 MG
  4. PROGESTERONE [Concomitant]
     Active Substance: PROGESTERONE
     Indication: Hormone level abnormal
  5. TESTOSTERONE [Concomitant]
     Active Substance: TESTOSTERONE
     Indication: Hormone level abnormal
     Dosage: 30 MG
  6. TESTOSTERONE [Concomitant]
     Active Substance: TESTOSTERONE
     Indication: Menstrual disorder

REACTIONS (1)
  - Tinnitus [Unknown]
